FAERS Safety Report 16214303 (Version 3)
Quarter: 2019Q2

REPORT INFORMATION
  Report Type: Spontaneous
  Country: US (occurrence: US)
  Receive Date: 20190418
  Receipt Date: 20190612
  Transmission Date: 20190711
  Serious: Yes (Hospitalization)
  Sender: FDA-Public Use
  Company Number: US-MALLINCKRODT-T201902242

PATIENT
  Sex: Female
  Weight: 109 kg

DRUGS (1)
  1. H.P. ACTHAR [Suspect]
     Active Substance: CORTICOTROPIN
     Indication: SYSTEMIC LUPUS ERYTHEMATOSUS
     Dosage: 80 UNITS/1 ML, TWO TIMES A WEEK, AS DIRECTED
     Route: 058
     Dates: start: 201902

REACTIONS (7)
  - Joint swelling [Unknown]
  - Back disorder [Unknown]
  - Dehydration [Unknown]
  - Spinal operation [Unknown]
  - Sinusitis [Unknown]
  - Urinary tract infection [Unknown]
  - Pyrexia [Unknown]

NARRATIVE: CASE EVENT DATE: 2019
